FAERS Safety Report 4769023-7 (Version None)
Quarter: 2005Q3

REPORT INFORMATION
  Report Type: 
  Country: None (occurrence: None)
  Receive Date: 20050906
  Receipt Date: 20050510
  Transmission Date: 20060218
  Serious: No
  Sender: FDA-Public Use
  Company Number: 2005-BP-07175BP

PATIENT
  Age: 63 Year
  Sex: Female

DRUGS (9)
  1. SPIRIVA [Suspect]
     Indication: ASTHMA
     Dosage: 18 MCG (18 MCG,1 IN 1 D),IH
     Dates: start: 20040714, end: 20050205
  2. SPIRIVA [Suspect]
     Indication: CHRONIC OBSTRUCTIVE PULMONARY DISEASE
     Dosage: 18 MCG (18 MCG,1 IN 1 D),IH
     Dates: start: 20040714, end: 20050205
  3. ADVAIR DISKUS 100/50 [Suspect]
     Indication: CHRONIC OBSTRUCTIVE PULMONARY DISEASE
     Dates: start: 20040714
  4. FORADIL [Suspect]
     Indication: CHRONIC OBSTRUCTIVE PULMONARY DISEASE
     Dates: start: 20040801
  5. VITAMIN E [Concomitant]
  6. CENTRUM SILVER (CENTRUM SILVER) [Concomitant]
  7. ASPIRIN [Concomitant]
  8. COSAMIN DS (COSAMIN DS) [Concomitant]
  9. COMBIVENT (COMBIVENT/GFR/) [Concomitant]

REACTIONS (6)
  - HEADACHE [None]
  - MIGRAINE [None]
  - PALPITATIONS [None]
  - SINUS CONGESTION [None]
  - SINUSITIS [None]
  - WHEEZING [None]
